FAERS Safety Report 13112900 (Version 1)
Quarter: 2017Q1

REPORT INFORMATION
  Report Type: Spontaneous
  Country: US (occurrence: US)
  Receive Date: 20170113
  Receipt Date: 20170113
  Transmission Date: 20170428
  Serious: No
  Sender: FDA-Public Use
  Company Number: US-BAYER-2017-006989

PATIENT
  Age: 29 Year
  Sex: Male
  Weight: 45.35 kg

DRUGS (1)
  1. ALEVE [Suspect]
     Active Substance: NAPROXEN SODIUM
     Indication: HEADACHE
     Dosage: 4 DF, UNK
     Route: 048
     Dates: start: 20170104, end: 20170111

REACTIONS (3)
  - Headache [Recovering/Resolving]
  - Drug ineffective [Unknown]
  - Product use issue [Unknown]

NARRATIVE: CASE EVENT DATE: 20170104
